FAERS Safety Report 4612532-1 (Version None)
Quarter: 2005Q1

REPORT INFORMATION
  Report Type: 
  Country: None (occurrence: None)
  Receive Date: 20050318
  Receipt Date: 20050307
  Transmission Date: 20050727
  Serious: Yes (Hospitalization, Other)
  Sender: FDA-Public Use
  Company Number: FR-BRISTOL-MYERS SQUIBB COMPANY-12889598

PATIENT
  Age: 41 Year
  Sex: Male

DRUGS (8)
  1. VIDEX [Suspect]
     Indication: HIV INFECTION
     Route: 048
     Dates: start: 20030315, end: 20040916
  2. VIREAD [Suspect]
     Indication: HIV INFECTION
     Dates: start: 20030515, end: 20040901
  3. KALETRA [Suspect]
     Indication: HIV INFECTION
     Dates: start: 20030515
  4. LIPANTHYL [Concomitant]
  5. DEPAKOTE [Concomitant]
  6. PROZAC [Concomitant]
  7. ZYPREXA [Concomitant]
  8. CLOPIXOL [Concomitant]

REACTIONS (5)
  - BONE DENSITY DECREASED [None]
  - MULTIPLE FRACTURES [None]
  - NEPHRITIS [None]
  - NEUROPATHY PERIPHERAL [None]
  - OSTEOMALACIA [None]
